FAERS Safety Report 9636796 (Version 3)
Quarter: 2013Q4

REPORT INFORMATION
  Report Type: Report from Study
  Country: CA (occurrence: CA)
  Receive Date: 20131022
  Receipt Date: 20131028
  Transmission Date: 20140711
  Serious: Yes (Other)
  Sender: FDA-Public Use
  Company Number: CA-ROCHE-1291510

PATIENT
  Age: 34 Year
  Sex: Female
  Weight: 70 kg

DRUGS (9)
  1. RITUXAN [Suspect]
     Indication: PEMPHIGUS
     Route: 042
     Dates: start: 20131009
  2. DIPHENHYDRAMINE HCL [Concomitant]
     Indication: PREMEDICATION
     Route: 048
     Dates: start: 20131009
  3. ACETAMINOPHEN [Concomitant]
     Indication: PREMEDICATION
     Route: 048
     Dates: start: 20131009
  4. METHYLPREDNISOLONE [Concomitant]
     Indication: PREMEDICATION
     Route: 042
     Dates: start: 20131009
  5. PREDNISONE [Concomitant]
  6. CIPRALEX [Concomitant]
  7. TYLENOL [Concomitant]
     Route: 065
  8. IMURAN [Concomitant]
  9. TOPIRAMATE [Concomitant]

REACTIONS (8)
  - Convulsion [Recovered/Resolved]
  - Respiratory rate increased [Recovered/Resolved]
  - Pain [Unknown]
  - Vomiting [Recovered/Resolved]
  - Memory impairment [Unknown]
  - Off label use [Unknown]
  - Memory impairment [Recovering/Resolving]
  - Back pain [Recovering/Resolving]
